FAERS Safety Report 18973444 (Version 8)
Quarter: 2022Q3

REPORT INFORMATION
  Report Type: Report from Study
  Country: US (occurrence: US)
  Receive Date: 20210305
  Receipt Date: 20220919
  Transmission Date: 20221026
  Serious: Yes (Hospitalization)
  Sender: FDA-Public Use
  Company Number: US-TAKEDA-US202031996

PATIENT
  Age: 16 Year
  Sex: Female

DRUGS (1)
  1. HUMAN IMMUNOGLOBULIN G [Suspect]
     Active Substance: HUMAN IMMUNOGLOBULIN G
     Indication: Primary immunodeficiency syndrome
     Dosage: 16 GRAM, 2/WEEK
     Route: 065

REACTIONS (22)
  - Gastrointestinal disorder [Not Recovered/Not Resolved]
  - Weight decreased [Unknown]
  - Therapy interrupted [Unknown]
  - Immunoglobulins decreased [Unknown]
  - Feeding disorder [Unknown]
  - Hunger [Unknown]
  - Underweight [Not Recovered/Not Resolved]
  - Breast mass [Unknown]
  - Weight gain poor [Unknown]
  - Nasal congestion [Unknown]
  - Lactose intolerance [Unknown]
  - Memory impairment [Unknown]
  - Illness [Recovered/Resolved]
  - Upper respiratory tract infection [Not Recovered/Not Resolved]
  - Sinusitis [Unknown]
  - Fatigue [Unknown]
  - Asthenia [Recovered/Resolved]
  - Somnolence [Unknown]
  - Influenza like illness [Not Recovered/Not Resolved]
  - Weight increased [Unknown]
  - Bronchitis [Unknown]
  - Blood glucose abnormal [Unknown]

NARRATIVE: CASE EVENT DATE: 20200929
